FAERS Safety Report 12209302 (Version 2)
Quarter: 2017Q4

REPORT INFORMATION
  Report Type: Report from Study
  Country: GB (occurrence: GB)
  Receive Date: 20160324
  Receipt Date: 20171003
  Transmission Date: 20180320
  Serious: Yes (Hospitalization, Other)
  Sender: FDA-Public Use
  Company Number: GB-REGENERON PHARMACEUTICALS, INC.-2016-14462

PATIENT

DRUGS (1)
  1. LASER [Suspect]
     Active Substance: DEVICE
     Indication: DIABETIC RETINOPATHY
     Dosage: UNK
     Dates: start: 20141105, end: 20150525

REACTIONS (1)
  - Vitreous haemorrhage [Recovered/Resolved]

NARRATIVE: CASE EVENT DATE: 20150525
